FAERS Safety Report 8205311-X (Version None)
Quarter: 2012Q1

REPORT INFORMATION
  Report Type: 
  Country: None (occurrence: None)
  Receive Date: 20120313
  Receipt Date: 20120227
  Transmission Date: 20120608
  Serious: Yes (Hospitalization)
  Sender: FDA-Public Use
  Company Number: US-ARROW GEN-2012-03379

PATIENT
  Age: 58 Year
  Sex: Female

DRUGS (6)
  1. HYDROCHLOROTHIAZIDE [Suspect]
     Indication: HYPERTENSION
     Dosage: 12.5 MG, UNK
     Route: 065
     Dates: start: 20000101
  2. UNKNOWN STUDY DRUG [Suspect]
     Indication: SEASONAL ALLERGY
     Dosage: 1 TABLET
     Route: 060
     Dates: start: 20110117
  3. IBUPROFEN [Suspect]
     Indication: SINUS HEADACHE
     Dosage: 200 MG, PRN
     Route: 065
  4. RANITIDINE HYDROCHLORIDE [Suspect]
     Indication: GASTROOESOPHAGEAL REFLUX DISEASE
     Dosage: PRN
     Route: 065
  5. FLUOXETINE HCL [Suspect]
     Indication: ANXIETY
     Dosage: 40 MG, DAILY
     Route: 048
     Dates: start: 20000101
  6. LISINOPRIL [Suspect]
     Indication: PRODUCT USED FOR UNKNOWN INDICATION
     Dosage: UNK
     Route: 065
     Dates: start: 20000101

REACTIONS (3)
  - FALL [None]
  - MULTIPLE FRACTURES [None]
  - DIZZINESS [None]
